FAERS Safety Report 24022749 (Version 3)
Quarter: 2024Q3

REPORT INFORMATION
  Report Type: Spontaneous
  Country: IN (occurrence: IN)
  Receive Date: 20240627
  Receipt Date: 20240710
  Transmission Date: 20241017
  Serious: No
  Sender: ROCHE
  Company Number: IN-ROCHE-3523919

PATIENT
  Age: 40 Year
  Sex: Male

DRUGS (3)
  1. VABYSMO [Suspect]
     Active Substance: FARICIMAB\FARICIMAB-SVOA
     Indication: Retinal neovascularisation
     Route: 050
     Dates: start: 20240305
  2. ZYMAXID [Concomitant]
     Active Substance: GATIFLOXACIN
     Dosage: 1 DROP 4 TIMES FOR 2 WEEKS
     Route: 047
     Dates: start: 20240305
  3. ACETAMINOPHEN\IBUPROFEN [Concomitant]
     Active Substance: ACETAMINOPHEN\IBUPROFEN
     Dosage: 1 TIME 1 TAB SOS IF PAIN
     Route: 048
     Dates: start: 20240305

REACTIONS (2)
  - Off label use [Unknown]
  - No adverse event [Unknown]

NARRATIVE: CASE EVENT DATE: 20240305
